FAERS Safety Report 8089037-1 (Version None)
Quarter: 2012Q1

REPORT INFORMATION
  Report Type: 
  Country: None (occurrence: None)
  Receive Date: 20120128
  Receipt Date: 20110727
  Transmission Date: 20120608
  Serious: No
  Sender: FDA-Public Use
  Company Number: US-ABBOTT-10P-163-0688506-00

PATIENT
  Age: 66 Year
  Sex: Female

DRUGS (9)
  1. UNKNOWN TOPICALS [Concomitant]
     Indication: PSORIASIS
     Dosage: NOT REPORTED
  2. HUMIRA [Suspect]
  3. TRAMADOL HCL [Concomitant]
     Indication: BACK PAIN
  4. TRAMADOL HCL [Concomitant]
     Indication: NECK PAIN
  5. OXYBUTYNIN [Concomitant]
     Indication: URINARY INCONTINENCE
  6. FLONASE [Concomitant]
     Indication: ASTHMA PROPHYLAXIS
     Dosage: ONE SPRAY EACH NOSTRIL
  7. FLONASE [Concomitant]
     Indication: HYPERSENSITIVITY
  8. HUMIRA [Suspect]
     Indication: PSORIASIS
     Dates: start: 20100701, end: 20110101
  9. TIZANIDINE HCL [Concomitant]
     Indication: MUSCLE RELAXANT THERAPY

REACTIONS (4)
  - THERAPY REGIMEN CHANGED [None]
  - ASTHMA [None]
  - DRUG INEFFECTIVE [None]
  - PSORIASIS [None]
